FAERS Safety Report 8330103-0 (Version None)
Quarter: 2012Q2

REPORT INFORMATION
  Report Type: 
  Country: None (occurrence: None)
  Receive Date: 20120502
  Receipt Date: 20120430
  Transmission Date: 20120825
  Serious: Yes (Hospitalization, Other)
  Sender: FDA-Public Use
  Company Number: US-ELI_LILLY_AND_COMPANY-US201205000165

PATIENT
  Sex: Male

DRUGS (1)
  1. HUMULIN 70/30 [Suspect]
     Indication: TYPE 1 DIABETES MELLITUS
     Dosage: 20 U, UNK
     Dates: start: 20100101

REACTIONS (11)
  - HALLUCINATION, AUDITORY [None]
  - PSYCHIATRIC EVALUATION [None]
  - CHEST DISCOMFORT [None]
  - MALAISE [None]
  - PRODUCT ODOUR ABNORMAL [None]
  - FEELING ABNORMAL [None]
  - LOSS OF CONSCIOUSNESS [None]
  - BLINDNESS [None]
  - PRODUCT TAMPERING [None]
  - EYE DISORDER [None]
  - CHEST PAIN [None]
